FAERS Safety Report 4767815-1 (Version None)
Quarter: 2005Q3

REPORT INFORMATION
  Report Type: 
  Country: None (occurrence: None)
  Receive Date: 20050912
  Receipt Date: 20050902
  Transmission Date: 20060218
  Serious: Yes (Hospitalization)
  Sender: FDA-Public Use
  Company Number: TCI2005A01997

PATIENT
  Age: 75 Year
  Sex: Female

DRUGS (12)
  1. ACTOS [Suspect]
     Indication: DIABETES MELLITUS NON-INSULIN-DEPENDENT
     Dosage: SEE IMAGE
     Route: 048
     Dates: start: 20050105, end: 20050301
  2. ACTOS [Suspect]
     Indication: DIABETES MELLITUS NON-INSULIN-DEPENDENT
     Dosage: SEE IMAGE
     Route: 048
     Dates: start: 20050302, end: 20050316
  3. BASEN (VOGLIBOSE) [Concomitant]
  4. BASEN OD TABLETS 0.3 (VOGLIBOSE) [Concomitant]
  5. EUGLUCON (GLIBENCLAMIDE) [Concomitant]
  6. KINEDAK (EPALRESTAT) [Concomitant]
  7. ISOSORBIDE MONONITRATE [Concomitant]
  8. CONIEL (BENIDIPINE HYDROCHLORIDE) [Concomitant]
  9. COVERSYL (PERINDOPRIL ERBUMINE) [Concomitant]
  10. LIPITOR [Concomitant]
  11. DIOVAN [Concomitant]
  12. LENDORMIN D (BROTIZOLAM) [Concomitant]

REACTIONS (2)
  - CARDIAC FAILURE CONGESTIVE [None]
  - WEIGHT INCREASED [None]
